FAERS Safety Report 15267910 (Version 1)
Quarter: 2018Q3

REPORT INFORMATION
  Report Type: Spontaneous
  Country: US (occurrence: US)
  Receive Date: 20180725
  Receipt Date: 20180725
  Transmission Date: 20181010
  Serious: Yes (Disabling)
  Sender: FDA-Public Use
  Company Number: None

PATIENT
  Age: 39 Year
  Sex: Female
  Weight: 61.69 kg

DRUGS (1)
  1. MIRENA [Suspect]
     Active Substance: LEVONORGESTREL

REACTIONS (7)
  - Palpitations [None]
  - Pulmonary hypertension [None]
  - Peripheral vascular disorder [None]
  - Anxiety [None]
  - Fatigue [None]
  - Reynold^s syndrome [None]
  - Inflammation [None]

NARRATIVE: CASE EVENT DATE: 20180701
